FAERS Safety Report 25879264 (Version 2)
Quarter: 2025Q4

REPORT INFORMATION
  Report Type: Spontaneous
  Country: EU (occurrence: EU)
  Receive Date: 20251003
  Receipt Date: 20251105
  Transmission Date: 20260117
  Serious: Yes (Hospitalization)
  Sender: PFIZER
  Company Number: EU-PFIZER INC-202500195099

PATIENT
  Age: 68 Year
  Sex: Female

DRUGS (3)
  1. TAVOR (LORAZEPAM) [Suspect]
     Active Substance: LORAZEPAM
     Indication: Anxiety
     Dosage: 0.5 MG (HALF A TABLET OF 1 MG), TWICE
     Route: 048
  2. TAVOR (LORAZEPAM) [Suspect]
     Active Substance: LORAZEPAM
     Dosage: LESS THAN HALF A TABLET
     Route: 048
  3. GABAPENTIN [Concomitant]
     Active Substance: GABAPENTIN
     Dosage: UNK

REACTIONS (6)
  - Fall [Unknown]
  - Anaemia [Recovered/Resolved]
  - Muscular weakness [Recovered/Resolved]
  - Paraesthesia [Recovering/Resolving]
  - Vitamin B12 deficiency [Recovered/Resolved]
  - Incorrect dose administered [Unknown]
